FAERS Safety Report 10040728 (Version 2)
Quarter: 2014Q2

REPORT INFORMATION
  Report Type: Spontaneous
  Country: US (occurrence: US)
  Receive Date: 20140327
  Receipt Date: 20140416
  Transmission Date: 20141212
  Serious: No
  Sender: FDA-Public Use
  Company Number: US-BAYER-2014-040734

PATIENT
  Sex: Female

DRUGS (1)
  1. CLIMARA [Suspect]
     Dosage: 0.05 MG/DAY ONCE PER WEEK
     Route: 062
     Dates: start: 201311

REACTIONS (3)
  - Erythema [None]
  - Pruritus [None]
  - Product adhesion issue [None]
